FAERS Safety Report 9307615 (Version 1)
Quarter: 2013Q2

REPORT INFORMATION
  Report Type: Spontaneous
  Country: US (occurrence: US)
  Receive Date: 20130524
  Receipt Date: 20130524
  Transmission Date: 20140414
  Serious: No
  Sender: FDA-Public Use
  Company Number: US-PFIZER INC-2013158639

PATIENT
  Sex: 0

DRUGS (1)
  1. VENLAFAXINE HCL [Suspect]
     Indication: ANXIETY DISORDER
     Dosage: UNK

REACTIONS (1)
  - Drug ineffective [Unknown]
